FAERS Safety Report 5174050-4 (Version None)
Quarter: 2006Q4

REPORT INFORMATION
  Report Type: 
  Country: None (occurrence: None)
  Receive Date: 20061214
  Receipt Date: 20060515
  Transmission Date: 20070319
  Serious: No
  Sender: FDA-Public Use
  Company Number: US-AMGEN-US179556

PATIENT
  Sex: Female

DRUGS (5)
  1. ENBREL [Suspect]
     Indication: RHEUMATOID ARTHRITIS
     Route: 058
     Dates: start: 20040101
  2. THYROID TAB [Concomitant]
     Route: 065
  3. ALEVE [Concomitant]
     Route: 065
  4. CELEBREX [Concomitant]
     Route: 065
  5. CORTICOSTEROID NOS [Concomitant]
     Route: 065

REACTIONS (2)
  - INJECTION SITE PAIN [None]
  - RASH [None]
